FAERS Safety Report 10419095 (Version 1)
Quarter: 2014Q3

REPORT INFORMATION
  Report Type: Spontaneous
  Country: US (occurrence: US)
  Receive Date: 20140829
  Receipt Date: 20140829
  Transmission Date: 20150326
  Serious: No
  Sender: FDA-Public Use
  Company Number: US-PFIZER INC-2014237146

PATIENT
  Age: 75 Year
  Sex: Female

DRUGS (1)
  1. PROCARDIA [Suspect]
     Active Substance: NIFEDIPINE
     Indication: BLOOD PRESSURE ABNORMAL
     Dosage: UNK (AT NIGHT)
     Dates: start: 2012

REACTIONS (6)
  - Malaise [Unknown]
  - Insomnia [Unknown]
  - Peripheral swelling [Unknown]
  - Poor quality sleep [Unknown]
  - Pain [Unknown]
  - Joint swelling [Unknown]

NARRATIVE: CASE EVENT DATE: 20140824
